FAERS Safety Report 10757184 (Version 3)
Quarter: 2015Q1

REPORT INFORMATION
  Report Type: Spontaneous
  Country: JP (occurrence: None)
  Receive Date: 20150130
  Receipt Date: 20150320
  Transmission Date: 20150721
  Serious: Yes (Death, Hospitalization, Other)
  Sender: FDA-Public Use
  Company Number: JP2015JPN009992

PATIENT
  Age: 37 Year
  Sex: Male

DRUGS (12)
  1. VIREAD [Suspect]
     Active Substance: TENOFOVIR DISOPROXIL FUMARATE
     Route: 048
  2. ISENTRESS [Suspect]
     Active Substance: RALTEGRAVIR POTASSIUM
     Indication: HIV INFECTION
     Route: 048
  3. EPZICOM [Suspect]
     Active Substance: ABACAVIR SULFATE\LAMIVUDINE
     Route: 048
  4. KALETRA [Suspect]
     Active Substance: LOPINAVIR\RITONAVIR
     Indication: HIV INFECTION
  5. COMBIVIR [Suspect]
     Active Substance: LAMIVUDINE\ZIDOVUDINE
     Route: 048
  6. EPIVIR [Suspect]
     Active Substance: LAMIVUDINE
     Route: 048
  7. REYATAZ [Suspect]
     Active Substance: ATAZANAVIR SULFATE
     Indication: HIV INFECTION
     Route: 048
  8. RITONAVIR (RITONAVIR) UNKNOWN [Suspect]
     Active Substance: RITONAVIR
     Route: 048
  9. ZERIT [Suspect]
     Active Substance: STAVUDINE
     Indication: HIV INFECTION
     Route: 048
  10. EFAVIRENZ [Suspect]
     Active Substance: EFAVIRENZ
     Route: 048
  11. NELFINAVIR MESYLATE [Suspect]
     Active Substance: NELFINAVIR MESYLATE
     Route: 048
  12. TRUVADA [Suspect]
     Active Substance: EMTRICITABINE\TENOFOVIR DISOPROXIL FUMARATE
     Indication: HIV INFECTION
     Route: 048

REACTIONS (19)
  - Brain death [None]
  - JC virus infection [None]
  - Masked facies [None]
  - Immune reconstitution inflammatory syndrome [None]
  - Central nervous system lymphoma [None]
  - Disorientation [None]
  - Locked-in syndrome [None]
  - Pyrexia [None]
  - Dyspnoea [None]
  - Lethargy [None]
  - Bradykinesia [None]
  - Fatigue [None]
  - Decreased appetite [None]
  - Progressive multifocal leukoencephalopathy [None]
  - Hyperreflexia [None]
  - Abulia [None]
  - Treatment noncompliance [None]
  - Dysarthria [None]
  - Haemophilic arthropathy [None]

NARRATIVE: CASE EVENT DATE: 201211
